FAERS Safety Report 9048925 (Version 1)
Quarter: 2013Q1

REPORT INFORMATION
  Report Type: Spontaneous
  Country: US (occurrence: None)
  Receive Date: 20130130
  Receipt Date: 20130130
  Transmission Date: 20140127
  Serious: No
  Sender: FDA-Public Use
  Company Number: None

PATIENT
  Sex: 0

DRUGS (1)
  1. PACERONE [Suspect]

REACTIONS (4)
  - Dyspepsia [None]
  - Dyspepsia [None]
  - Chest discomfort [None]
  - Product substitution issue [None]
